FAERS Safety Report 15794247 (Version 1)
Quarter: 2019Q1

REPORT INFORMATION
  Report Type: Spontaneous
  Country: CN (occurrence: CN)
  Receive Date: 20190107
  Receipt Date: 20190107
  Transmission Date: 20190417
  Serious: Yes (Disabling, Other)
  Sender: FDA-Public Use
  Company Number: CN-GLAXOSMITHKLINE-CN2018236410

PATIENT
  Age: 66 Year
  Sex: Female
  Weight: 65 kg

DRUGS (3)
  1. DICLOFENAC DIETHYLAMINE [Concomitant]
     Active Substance: DICLOFENAC DIETHYLAMINE
     Indication: PRODUCT USED FOR UNKNOWN INDICATION
     Dosage: 0.5 G, TID
     Route: 062
     Dates: end: 20181101
  2. CALCIUM CARBONATE. [Concomitant]
     Active Substance: CALCIUM CARBONATE
     Indication: FRACTURE
     Dosage: 1 DF, QD
     Route: 048
     Dates: start: 20181010, end: 20181025
  3. VOLTAREN (DICLOFENAC DIETHYLAMMONIUM SALT) [Suspect]
     Active Substance: DICLOFENAC DIETHYLAMINE
     Indication: PAIN
     Dosage: 0.5 G, TID
     Route: 061
     Dates: start: 20181010, end: 20181101

REACTIONS (6)
  - Hepatocellular injury [Recovering/Resolving]
  - Asthenia [Recovering/Resolving]
  - Scleral disorder [Recovering/Resolving]
  - Decreased appetite [Recovering/Resolving]
  - Yellow skin [Recovering/Resolving]
  - Urine analysis abnormal [Recovering/Resolving]

NARRATIVE: CASE EVENT DATE: 20181027
